FAERS Safety Report 5867484-3 (Version None)
Quarter: 2008Q3

REPORT INFORMATION
  Report Type: 
  Country: None (occurrence: None)
  Receive Date: 20080902
  Receipt Date: 20080902
  Transmission Date: 20090109
  Serious: Yes (Hospitalization, Other)
  Sender: FDA-Public Use
  Company Number: FR-ABBOTT-08P-056-0469390-00

PATIENT
  Sex: Female

DRUGS (7)
  1. KALETRA [Suspect]
     Indication: HIV INFECTION
     Route: 048
     Dates: start: 20080505
  2. ETRICITABINE, TEOFOVIR DISOPROXIL [Suspect]
     Indication: HIV INFECTION
     Dosage: 200MG/245MG
     Route: 048
     Dates: start: 20080505
  3. ENFUVIRTIDE [Suspect]
     Indication: HIV INFECTION
     Dosage: 216 MG DAILY
     Route: 048
     Dates: start: 20080505
  4. AZITHROMYCIN [Concomitant]
     Indication: PROPHYLAXIS
     Route: 048
  5. PYRIMETHAMINE TAB [Concomitant]
     Indication: TOXOPLASMOSIS
     Route: 048
  6. FOLIC ACID [Concomitant]
     Indication: MALNUTRITION
     Route: 048
  7. PENTAMIDINE DIMESILATE [Concomitant]
     Indication: PNEUMOCYSTIS JIROVECI INFECTION
     Route: 055
     Dates: start: 20080222

REACTIONS (1)
  - ACUTE FEBRILE NEUTROPHILIC DERMATOSIS [None]
